FAERS Safety Report 13097296 (Version 2)
Quarter: 2017Q1

REPORT INFORMATION
  Report Type: Report from Study
  Country: IT (occurrence: IT)
  Receive Date: 20170109
  Receipt Date: 20170113
  Transmission Date: 20170428
  Serious: Yes (Hospitalization)
  Sender: FDA-Public Use
  Company Number: IT-TEVA-727130ACC

PATIENT
  Age: 44 Year
  Sex: Female

DRUGS (4)
  1. LACIDIPINA EG - 6 MG RIVOPHARM UK LIMITED [Concomitant]
     Indication: PRODUCT USED FOR UNKNOWN INDICATION
     Route: 048
  2. LANSOX - 15 MG CAPSULE PROGRAMMI SANITARI INTEGRATI S.R.L. [Concomitant]
     Indication: PRODUCT USED FOR UNKNOWN INDICATION
     Route: 048
  3. CLARITROMICINA TEVA - 500 MG COMPRESSE RIVESTITE CON FILM [Suspect]
     Active Substance: CLARITHROMYCIN
     Indication: PRODUCT USED FOR UNKNOWN INDICATION
     Dosage: 1 GRAM DAILY;
     Route: 048
  4. VALSARTAN. [Concomitant]
     Active Substance: VALSARTAN
     Indication: PRODUCT USED FOR UNKNOWN INDICATION
     Route: 048

REACTIONS (5)
  - Lip oedema [Recovered/Resolved]
  - Headache [Recovered/Resolved]
  - Pharyngeal oedema [Recovered/Resolved]
  - Pruritus [Recovered/Resolved]
  - Burning sensation [Recovered/Resolved]

NARRATIVE: CASE EVENT DATE: 20160107
